FAERS Safety Report 7790273-X (Version None)
Quarter: 2011Q3

REPORT INFORMATION
  Report Type: 
  Country: None (occurrence: None)
  Receive Date: 20110930
  Receipt Date: 20110927
  Transmission Date: 20111222
  Serious: Yes (Death)
  Sender: FDA-Public Use
  Company Number: PHHY2011FR85730

PATIENT
  Age: 98 Year
  Sex: Female

DRUGS (2)
  1. METHOTREXATE [Suspect]
     Indication: PEMPHIGOID
     Dosage: 5 MG, UNK
  2. METHOTREXATE [Suspect]
     Dosage: 7.5 MG, QW

REACTIONS (6)
  - MUTISM [None]
  - SLEEP DISORDER [None]
  - FAILURE TO THRIVE [None]
  - HYPERSOMNIA [None]
  - DEATH [None]
  - DECREASED APPETITE [None]
